FAERS Safety Report 14032891 (Version 2)
Quarter: 2017Q4

REPORT INFORMATION
  Report Type: Spontaneous
  Country: US (occurrence: US)
  Receive Date: 20171002
  Receipt Date: 20171107
  Transmission Date: 20180321
  Serious: Yes (Hospitalization)
  Sender: FDA-Public Use
  Company Number: US-VIFOR (INTERNATIONAL) INC.-VIT-2017-09939

PATIENT
  Age: 75 Year
  Sex: Female

DRUGS (17)
  1. LASIX [Concomitant]
     Active Substance: FUROSEMIDE
  2. LACTOBACILLUS ACIDOPHILUS~~BIFIDOBACTERIUM INFANTIS [Concomitant]
  3. AMLODIPINE BESILATE [Concomitant]
     Active Substance: AMLODIPINE BESYLATE
  4. CYMBALTA [Concomitant]
     Active Substance: DULOXETINE HYDROCHLORIDE
  5. LANTUS SOLOSTAR [Concomitant]
     Active Substance: INSULIN GLARGINE
  6. COLECALCIFEROL [Concomitant]
     Active Substance: CHOLECALCIFEROL
  7. ATROPINE SULFATE~~DIPHENOXYLATE HYDROCHLORIDE [Concomitant]
  8. COREG [Concomitant]
     Active Substance: CARVEDILOL
  9. NOVOLOG [Concomitant]
     Active Substance: INSULIN ASPART
  10. BIOTIN [Concomitant]
     Active Substance: BIOTIN
  11. ACETYLSALICYLIC ACID [Concomitant]
     Active Substance: ASPIRIN
  12. PRAVASTATIN SODIUM. [Concomitant]
     Active Substance: PRAVASTATIN SODIUM
  13. ADVAIR DISKUS [Concomitant]
     Active Substance: FLUTICASONE PROPIONATE\SALMETEROL XINAFOATE
  14. PERCOCET [Concomitant]
     Active Substance: ACETAMINOPHEN\OXYCODONE HYDROCHLORIDE
  15. VELTASSA [Suspect]
     Active Substance: PATIROMER
     Indication: HYPERKALAEMIA
     Route: 048
     Dates: start: 20160421
  16. SPIRIVA [Concomitant]
     Active Substance: TIOTROPIUM BROMIDE MONOHYDRATE
  17. PROAIR HFA [Concomitant]
     Active Substance: ALBUTEROL SULFATE

REACTIONS (2)
  - Pneumonia [Unknown]
  - Hospitalisation [Unknown]

NARRATIVE: CASE EVENT DATE: 201709
